FAERS Safety Report 7890027-X (Version None)
Quarter: 2011Q4

REPORT INFORMATION
  Report Type: 
  Country: None (occurrence: None)
  Receive Date: 20111103
  Receipt Date: 20111028
  Transmission Date: 20120403
  Serious: Yes (Hospitalization, Other)
  Sender: FDA-Public Use
  Company Number: PHHY2011AR95923

PATIENT
  Sex: Male

DRUGS (2)
  1. ONBREZ [Suspect]
     Dosage: UNK
  2. ONBREZ [Suspect]
     Dosage: 1 DF, QD

REACTIONS (1)
  - NOSOCOMIAL INFECTION [None]
